FAERS Safety Report 13476302 (Version 1)
Quarter: 2017Q2

REPORT INFORMATION
  Report Type: Spontaneous
  Country: US (occurrence: US)
  Receive Date: 20170424
  Receipt Date: 20170424
  Transmission Date: 20170830
  Serious: Yes (Hospitalization, Disabling)
  Sender: FDA-Public Use
  Company Number: None

PATIENT
  Age: 35 Year
  Sex: Female
  Weight: 58.06 kg

DRUGS (6)
  1. WOMEN^S ONE A DAY [Concomitant]
  2. MAGNESIUM [Concomitant]
     Active Substance: MAGNESIUM
  3. PROBIOTICS [Concomitant]
     Active Substance: PROBIOTICS NOS
  4. VITAMIN B COMPLEX [Concomitant]
     Active Substance: CYANOCOBALAMIN\DEXPANTHENOL\NIACINAMIDE\PYRIDOXINE HYDROCHLORIDE\RIBOFLAVIN 5^-PHOSPHATE SODIUM\THIAMINE HYDROCHLORIDE\VITAMIN B COMPLEX
  5. DOTAREM [Suspect]
     Active Substance: GADOTERATE MEGLUMINE
  6. D-MANNOSE [Concomitant]

REACTIONS (26)
  - Muscle twitching [None]
  - Lacrimation increased [None]
  - Ear pain [None]
  - Feeling cold [None]
  - Muscle spasms [None]
  - Sensory disturbance [None]
  - Muscle fatigue [None]
  - Hypertension [None]
  - Eye pain [None]
  - Hypersensitivity [None]
  - Dry eye [None]
  - Loss of personal independence in daily activities [None]
  - Arthralgia [None]
  - Hypoaesthesia [None]
  - Gingival pain [None]
  - Burning sensation [None]
  - Asthenia [None]
  - Pruritus [None]
  - Dizziness [None]
  - Chest pain [None]
  - Constipation [None]
  - Gingival recession [None]
  - Paraesthesia [None]
  - Vision blurred [None]
  - Tremor [None]
  - Nasal congestion [None]

NARRATIVE: CASE EVENT DATE: 20170403
